FAERS Safety Report 13513094 (Version 19)
Quarter: 2025Q3

REPORT INFORMATION
  Report Type: Spontaneous
  Country: CL (occurrence: CL)
  Receive Date: 20170504
  Receipt Date: 20250919
  Transmission Date: 20251021
  Serious: Yes (Hospitalization, Disabling, Other)
  Sender: BIOMARIN
  Company Number: CL-BIOMARINAP-CL-2017-113866

PATIENT
  Age: 8 Year
  Sex: Male
  Weight: 19.7 kg

DRUGS (7)
  1. LARONIDASE [Suspect]
     Active Substance: LARONIDASE
     Indication: Mucopolysaccharidosis I
     Dosage: 4 DF (4 VIALS; 11.6 MG) WEEKLY
     Route: 041
     Dates: start: 2012, end: 202011
  2. LARONIDASE [Suspect]
     Active Substance: LARONIDASE
     Dosage: 4 DF (4 VIALS; 11.6 MG) WEEKLY
     Route: 041
  3. LARONIDASE [Suspect]
     Active Substance: LARONIDASE
     Dosage: 7 DF, QW (7 VIALS OF 2.9 MG)
     Route: 041
  4. PREGABALIN [Concomitant]
     Active Substance: PREGABALIN
     Indication: Product used for unknown indication
     Dosage: 100 MG, QD
  5. SPIRONOLACTONE [Concomitant]
     Active Substance: SPIRONOLACTONE
     Indication: Product used for unknown indication
     Dosage: 25 MG, QD
  6. ACETAMINOPHEN [Concomitant]
     Active Substance: ACETAMINOPHEN
     Indication: Premedication
  7. CHLORPHENIRAMINE MALEATE [Concomitant]
     Active Substance: CHLORPHENIRAMINE MALEATE
     Indication: Premedication

REACTIONS (19)
  - Spinal cord compression [Not Recovered/Not Resolved]
  - Mitral valve incompetence [Unknown]
  - Hypertension [Recovered/Resolved]
  - Fatigue [Not Recovered/Not Resolved]
  - Tachycardia [Not Recovered/Not Resolved]
  - Hyperhidrosis [Not Recovered/Not Resolved]
  - Cervical cord compression [Not Recovered/Not Resolved]
  - Paraesthesia [Not Recovered/Not Resolved]
  - Intervertebral disc protrusion [Recovering/Resolving]
  - Carpal tunnel syndrome [Not Recovered/Not Resolved]
  - Pain in extremity [Not Recovered/Not Resolved]
  - Dislocation of vertebra [Unknown]
  - Influenza [Unknown]
  - Ear infection [Unknown]
  - Localised infection [Unknown]
  - Neck pain [Unknown]
  - Diarrhoea [Unknown]
  - Nausea [Unknown]
  - Intentional dose omission [Unknown]

NARRATIVE: CASE EVENT DATE: 20201025
